FAERS Safety Report 9753297 (Version 1)
Quarter: 2013Q4

REPORT INFORMATION
  Report Type: Spontaneous
  Country: NL (occurrence: NL)
  Receive Date: 20131213
  Receipt Date: 20131213
  Transmission Date: 20140711
  Serious: Yes (Other)
  Sender: FDA-Public Use
  Company Number: NL-PFIZER INC-2013353277

PATIENT
  Age: 56 Year
  Sex: Male

DRUGS (1)
  1. LATANOPROST PFIZER [Suspect]

REACTIONS (1)
  - Ocular hypertension [Unknown]
